FAERS Safety Report 5847663-1 (Version None)
Quarter: 2008Q3

REPORT INFORMATION
  Report Type: 
  Country: None (occurrence: None)
  Receive Date: 20080818
  Receipt Date: 20080807
  Transmission Date: 20090109
  Serious: Yes (Other)
  Sender: FDA-Public Use
  Company Number: AT-JNJFOC-20080801823

PATIENT
  Age: 47 Year
  Sex: Female

DRUGS (3)
  1. REMICADE [Suspect]
     Indication: CROHN'S DISEASE
     Route: 042
  2. IMUREK [Concomitant]
  3. IMUREK [Concomitant]
     Indication: CROHN'S DISEASE

REACTIONS (1)
  - LEIOMYOSARCOMA [None]
